FAERS Safety Report 18095239 (Version 3)
Quarter: 2021Q1

REPORT INFORMATION
  Report Type: Report from Study
  Country: MX (occurrence: MX)
  Receive Date: 20200730
  Receipt Date: 20210303
  Transmission Date: 20210419
  Serious: Yes (Hospitalization, Other)
  Sender: FDA-Public Use
  Company Number: PHHY2019MX148211

PATIENT
  Sex: Female
  Weight: 59 kg

DRUGS (9)
  1. CELECOXIB. [Concomitant]
     Active Substance: CELECOXIB
     Indication: INFLAMMATION
     Dosage: UNK
     Route: 065
  2. ALDACTONE [Concomitant]
     Active Substance: SPIRONOLACTONE
     Indication: FLUID RETENTION
     Dosage: 25 MG, UNK
     Route: 048
     Dates: start: 20180201
  3. CARDIS [Suspect]
     Active Substance: ISOSORBIDE MONONITRATE
     Indication: BLOOD PRESSURE ABNORMAL
  4. DIOVAN [Suspect]
     Active Substance: VALSARTAN
     Indication: HYPERTENSION
     Dosage: 1 DF, (AT 7 IN THE MORNING)
     Route: 048
     Dates: start: 1979
  5. DIOVAN [Suspect]
     Active Substance: VALSARTAN
     Dosage: UNK, QD
     Route: 065
  6. DIOVAN [Suspect]
     Active Substance: VALSARTAN
     Indication: CARDIAC MURMUR
     Dosage: UNK, QD
     Route: 065
  7. CRESTOR [Concomitant]
     Active Substance: ROSUVASTATIN CALCIUM
     Indication: HYPERCHOLESTEROLAEMIA
     Dosage: 10 MG, UNK
     Route: 048
     Dates: start: 20180201
  8. DIOVAN [Suspect]
     Active Substance: VALSARTAN
     Indication: CARDIAC DISORDER
     Dosage: UNK, BID
     Route: 065
  9. CARDIS [Suspect]
     Active Substance: ISOSORBIDE MONONITRATE
     Indication: CARDIAC MURMUR
     Dosage: 1 DF, BID (MORNING AND AFTERNOON) (10 YEARS AGO)
     Route: 048

REACTIONS (43)
  - Memory impairment [Unknown]
  - Injury [Recovered/Resolved]
  - Nasopharyngitis [Unknown]
  - Chest pain [Unknown]
  - Dizziness [Recovering/Resolving]
  - Dysstasia [Recovered/Resolved]
  - Product prescribing error [Unknown]
  - Cardiovascular insufficiency [Recovering/Resolving]
  - Musculoskeletal stiffness [Not Recovered/Not Resolved]
  - Muscle contracture [Not Recovered/Not Resolved]
  - Pain [Unknown]
  - Feeling abnormal [Recovered/Resolved]
  - Swelling face [Unknown]
  - Hyperhidrosis [Recovering/Resolving]
  - Cardiac failure [Unknown]
  - Dry eye [Unknown]
  - Somnolence [Recovered/Resolved]
  - Influenza [Recovered/Resolved]
  - Headache [Unknown]
  - Clumsiness [Unknown]
  - Inappropriate schedule of product administration [Unknown]
  - Hypertension [Unknown]
  - Aortic arteriosclerosis [Unknown]
  - Eating disorder [Unknown]
  - Eye irritation [Not Recovered/Not Resolved]
  - Ocular discomfort [Not Recovered/Not Resolved]
  - Fatigue [Recovering/Resolving]
  - Syncope [Recovering/Resolving]
  - Illness [Unknown]
  - Muscular weakness [Unknown]
  - General physical condition abnormal [Recovering/Resolving]
  - Stress [Unknown]
  - Fatigue [Recovered/Resolved]
  - Myocardial infarction [Unknown]
  - Toxicity to various agents [Unknown]
  - Cardiac disorder [Unknown]
  - Chest discomfort [Unknown]
  - Vision blurred [Recovering/Resolving]
  - Posture abnormal [Unknown]
  - Product use in unapproved indication [Unknown]
  - Abdominal discomfort [Recovered/Resolved]
  - Dehydration [Unknown]
  - Ocular hyperaemia [Recovered/Resolved]

NARRATIVE: CASE EVENT DATE: 2014
